FAERS Safety Report 16871442 (Version 1)
Quarter: 2019Q4

REPORT INFORMATION
  Report Type: Spontaneous
  Country: US (occurrence: US)
  Receive Date: 20190930
  Receipt Date: 20190930
  Transmission Date: 20200122
  Serious: Yes (Life-Threatening, Hospitalization)
  Sender: FDA-Public Use
  Company Number: None

PATIENT
  Age: 69 Year
  Sex: Male
  Weight: 112.5 kg

DRUGS (1)
  1. KEYTRUDA [Suspect]
     Active Substance: PEMBROLIZUMAB
     Indication: SKIN NEOPLASM EXCISION
     Route: 042

REACTIONS (3)
  - Impaired work ability [None]
  - Loss of personal independence in daily activities [None]
  - Myasthenia gravis [None]

NARRATIVE: CASE EVENT DATE: 20180101
